FAERS Safety Report 16408879 (Version 1)
Quarter: 2019Q2

REPORT INFORMATION
  Report Type: Spontaneous
  Country: US (occurrence: US)
  Receive Date: 20190610
  Receipt Date: 20190610
  Transmission Date: 20190711
  Serious: No
  Sender: FDA-Public Use
  Company Number: US-009507513-1905USA013011

PATIENT
  Age: 21 Year
  Weight: 64 kg

DRUGS (1)
  1. NEXPLANON [Suspect]
     Active Substance: ETONOGESTREL
     Dosage: 1 IMPLANT
     Dates: start: 20150215, end: 20190417

REACTIONS (8)
  - Menstruation irregular [Unknown]
  - Heart rate increased [Recovered/Resolved]
  - Complication associated with device [Recovered/Resolved]
  - Premenstrual syndrome [Unknown]
  - Device deployment issue [Unknown]
  - Complication of device removal [Recovered/Resolved]
  - Palpitations [Recovered/Resolved]
  - Incorrect product administration duration [Unknown]

NARRATIVE: CASE EVENT DATE: 20150215
